FAERS Safety Report 10010183 (Version 1)
Quarter: 2014Q1

REPORT INFORMATION
  Report Type: Spontaneous
  Country: US (occurrence: US)
  Receive Date: 20140312
  Receipt Date: 20140312
  Transmission Date: 20141002
  Serious: No
  Sender: FDA-Public Use
  Company Number: US-INCYTE CORPORATION-2013IN001855

PATIENT
  Age: 62 Year
  Sex: Male

DRUGS (9)
  1. JAKAFI [Suspect]
     Indication: ESSENTIAL THROMBOCYTHAEMIA
     Dosage: 20 MG, BID
     Route: 048
  2. DILTIAZEM [Concomitant]
  3. CENTRUM SILVER [Concomitant]
  4. LOVASTATIN [Concomitant]
  5. CALCIUM SUPPLEMENT [Concomitant]
  6. VITAMIN D [Concomitant]
  7. LEVOTHYROXINE [Concomitant]
  8. FENOFIBRATE [Concomitant]
  9. ASPIRIN [Concomitant]

REACTIONS (5)
  - Chest pain [Unknown]
  - Dyspnoea [Unknown]
  - Oedema peripheral [Unknown]
  - Muscle spasms [Unknown]
  - Anaemia [Unknown]
